FAERS Safety Report 6984738 (Version 3)
Quarter: 2014Q2

REPORT INFORMATION
  Report Type: Spontaneous
  Country: US (occurrence: US)
  Receive Date: 20090501
  Receipt Date: 20140415
  Transmission Date: 20141212
  Serious: Yes (Death, Hospitalization, Other)
  Sender: FDA-Public Use
  Company Number: US-ALEXION-A200800002

PATIENT
  Age: 52 Year
  Sex: Female

DRUGS (15)
  1. SOLIRIS [Suspect]
     Indication: PAROXYSMAL NOCTURNAL HAEMOGLOBINURIA
     Dosage: 600 MG, SINGLE
     Route: 042
     Dates: start: 20070522, end: 20070522
  2. SOLIRIS [Suspect]
     Dosage: 900 MG, SINGLE
     Route: 042
     Dates: start: 20071204, end: 20071204
  3. SOLIRIS [Suspect]
     Dosage: 900 MG, SINGLE
     Route: 042
     Dates: start: 20071218, end: 20071218
  4. SOLIRIS [Suspect]
     Dosage: 900 MG, SINGLE
     Route: 042
     Dates: start: 20080115, end: 20080115
  5. SOLIRIS [Suspect]
     Dosage: 900 MG, SINGLE
     Route: 042
     Dates: start: 20080129, end: 20080129
  6. SOLIRIS [Suspect]
     Dosage: 900 MG, SINGLE
     Route: 042
     Dates: start: 20080214, end: 20080214
  7. SOLIRIS [Suspect]
     Dosage: 600 MG, SINGLE
     Route: 042
     Dates: start: 20080520, end: 20080520
  8. EXJADE [Concomitant]
     Dosage: 1250 MG, QD
     Route: 048
  9. FOLIC ACID [Concomitant]
     Dosage: 2 MG, QD
     Route: 048
  10. FOLIC ACID [Concomitant]
     Dosage: 1 MG, QD
     Route: 048
  11. B12 [Concomitant]
     Dosage: 200 MG, QD
     Route: 048
  12. B12 [Concomitant]
     Dosage: 1000 UG, QD
     Route: 048
  13. COUMADIN [Concomitant]
     Dosage: 10 MG, QD
     Route: 048
  14. PHOSLO [Concomitant]
     Dosage: 667 MG, 4 TABLETS WITH MEALS TID
  15. TYLENOL [Concomitant]
     Dosage: 650 MG, Q4H, PRN
     Route: 048

REACTIONS (13)
  - Death [Fatal]
  - Subdural haematoma [Unknown]
  - Unevaluable event [Unknown]
  - Abdominal pain upper [Unknown]
  - Gastrointestinal haemorrhage [Unknown]
  - Bone marrow failure [Unknown]
  - Blood lactate dehydrogenase increased [Unknown]
  - Dialysis related complication [Unknown]
  - Arthritis bacterial [Recovered/Resolved]
  - Anaemia [Unknown]
  - Pyrexia [Unknown]
  - Haemoglobin decreased [Unknown]
  - Malaise [Unknown]
